FAERS Safety Report 13354129 (Version 3)
Quarter: 2017Q2

REPORT INFORMATION
  Report Type: Spontaneous
  Country: JP (occurrence: JP)
  Receive Date: 20170321
  Receipt Date: 20170414
  Transmission Date: 20170830
  Serious: Yes (Other)
  Sender: FDA-Public Use
  Company Number: JP-UCBSA-2017009696

PATIENT
  Age: 26 Year
  Sex: Female
  Weight: 58 kg

DRUGS (4)
  1. EXCEGRAN [Concomitant]
     Active Substance: ZONISAMIDE
     Indication: EPILEPSY
     Dosage: 300 MG, 3X/DAY (TID)
     Route: 048
     Dates: start: 20160203
  2. VIMPAT [Suspect]
     Active Substance: LACOSAMIDE
     Indication: EPILEPSY
     Dosage: 50 MG, 2X/DAY (BID)
     Route: 048
     Dates: start: 20161208, end: 20170201
  3. LEXOTAN [Concomitant]
     Active Substance: BROMAZEPAM
     Indication: ANXIETY
     Dosage: 1 MG, 3X/DAY (TID)
     Dates: start: 20100329
  4. CYMBALTA [Concomitant]
     Active Substance: DULOXETINE HYDROCHLORIDE
     Indication: PANIC DISORDER
     Dosage: 20 MG, ONCE DAILY (QD)
     Dates: start: 20161110

REACTIONS (2)
  - Eczema [Recovered/Resolved]
  - Deafness [Recovered/Resolved]

NARRATIVE: CASE EVENT DATE: 20161227
